FAERS Safety Report 5949063-2 (Version None)
Quarter: 2008Q4

REPORT INFORMATION
  Report Type: 
  Country: None (occurrence: None)
  Receive Date: 20081111
  Receipt Date: 20081030
  Transmission Date: 20090506
  Serious: Yes (Death, Other)
  Sender: FDA-Public Use
  Company Number: JP-ROCHE-585891

PATIENT
  Sex: Male
  Weight: 55 kg

DRUGS (3)
  1. PEGASYS [Suspect]
     Route: 058
     Dates: start: 20060811, end: 20070720
  2. PEGASYS [Suspect]
     Dosage: DOSE INCREASED
     Route: 058
     Dates: start: 20070803, end: 20080215
  3. COPEGUS [Suspect]
     Route: 048
     Dates: start: 20070803, end: 20080222

REACTIONS (3)
  - CARDIAC FAILURE [None]
  - OEDEMA [None]
  - PANCYTOPENIA [None]
